FAERS Safety Report 6372129-2 (Version None)
Quarter: 2009Q3

REPORT INFORMATION
  Report Type: 
  Country: None (occurrence: None)
  Receive Date: 20090917
  Receipt Date: 20090909
  Transmission Date: 20100115
  Serious: Yes (Hospitalization)
  Sender: FDA-Public Use
  Company Number: WAES 0903USA05625

PATIENT
  Age: 85 Year
  Sex: Female

DRUGS (5)
  1. ZETIA [Suspect]
     Indication: HYPERCHOLESTEROLAEMIA
     Dosage: 10 MG/DAILY, PO
     Route: 048
     Dates: start: 20080414
  2. AMLODIPINE BESYLATE [Concomitant]
  3. ATORVASTATIN CALCIUM [Concomitant]
  4. IMIDAPRIL HYDROCHLORIDE [Concomitant]
  5. ISOSORBIDE MONONITRATE [Concomitant]

REACTIONS (1)
  - CEREBRAL INFARCTION [None]
